FAERS Safety Report 16115586 (Version 1)
Quarter: 2019Q1

REPORT INFORMATION
  Report Type: Report from Study
  Country: None (occurrence: US)
  Receive Date: 20190325
  Receipt Date: 20190325
  Transmission Date: 20190418
  Serious: Yes (Hospitalization)
  Sender: FDA-Public Use
  Company Number: US-ABBVIE-19K-163-2624819-00

PATIENT
  Age: 40 Year
  Sex: Male
  Weight: 68.1 kg

DRUGS (1)
  1. HUMIRA [Suspect]
     Active Substance: ADALIMUMAB
     Indication: COLITIS ULCERATIVE
     Dosage: CITRATE FREE
     Route: 058
     Dates: start: 20181001, end: 20190121

REACTIONS (6)
  - Loss of consciousness [Unknown]
  - Decreased appetite [Unknown]
  - Malnutrition [Unknown]
  - Colitis ulcerative [Recovering/Resolving]
  - Anaemia [Unknown]
  - Lethargy [Unknown]

NARRATIVE: CASE EVENT DATE: 201901
